FAERS Safety Report 10674773 (Version 1)
Quarter: 2014Q4

REPORT INFORMATION
  Report Type: Report from Study
  Country: CA (occurrence: CA)
  Receive Date: 20141224
  Receipt Date: 20141224
  Transmission Date: 20150529
  Serious: Yes (Hospitalization)
  Sender: FDA-Public Use
  Company Number: CA-JNJFOC-20141214098

PATIENT
  Sex: Female
  Weight: 70.31 kg

DRUGS (1)
  1. SIMPONI [Suspect]
     Active Substance: GOLIMUMAB
     Indication: PSORIATIC ARTHROPATHY
     Route: 058
     Dates: start: 2014, end: 20141010

REACTIONS (8)
  - Fatigue [Unknown]
  - Hyperhidrosis [Unknown]
  - Influenza like illness [Unknown]
  - Diarrhoea [Unknown]
  - Weight decreased [Unknown]
  - Lymphadenopathy [Unknown]
  - Nausea [Unknown]
  - Contusion [Unknown]

NARRATIVE: CASE EVENT DATE: 2014
